FAERS Safety Report 7215960-3 (Version None)
Quarter: 2011Q1

REPORT INFORMATION
  Report Type: 
  Country: None (occurrence: None)
  Receive Date: 20110107
  Receipt Date: 20101230
  Transmission Date: 20110831
  Serious: Yes (Hospitalization, Disabling, Other)
  Sender: FDA-Public Use
  Company Number: US-MERCK-1009USA00050

PATIENT
  Age: 73 Year
  Sex: Female
  Weight: 81 kg

DRUGS (2)
  1. ACTONEL [Suspect]
     Indication: OSTEOPOROSIS
     Route: 048
     Dates: start: 20070101, end: 20080701
  2. FOSAMAX [Suspect]
     Indication: OSTEOPOROSIS
     Route: 048
     Dates: start: 20010101, end: 20060101

REACTIONS (31)
  - ABDOMINAL PAIN [None]
  - ANAEMIA [None]
  - WEIGHT INCREASED [None]
  - URINARY TRACT INFECTION [None]
  - ANXIETY [None]
  - BONE DISORDER [None]
  - ARTERIOSCLEROSIS CORONARY ARTERY [None]
  - DEPRESSION [None]
  - OBESITY [None]
  - TINNITUS [None]
  - NEURALGIA [None]
  - TOOTH ABSCESS [None]
  - DYSPEPSIA [None]
  - MENISCUS LESION [None]
  - BACK PAIN [None]
  - OSTEONECROSIS OF JAW [None]
  - CHEST PAIN [None]
  - COLONIC POLYP [None]
  - FOOT DEFORMITY [None]
  - DYSPHAGIA [None]
  - MUSCULOSKELETAL PAIN [None]
  - ORTHOPNOEA [None]
  - DUODENAL ULCER [None]
  - DYSPNOEA [None]
  - ANGINA PECTORIS [None]
  - DENTAL CARIES [None]
  - ROTATOR CUFF SYNDROME [None]
  - PAIN IN EXTREMITY [None]
  - VISUAL IMPAIRMENT [None]
  - GINGIVITIS [None]
  - OSTEOARTHRITIS [None]
